FAERS Safety Report 4951140-X (Version None)
Quarter: 2006Q1

REPORT INFORMATION
  Report Type: 
  Country: None (occurrence: None)
  Receive Date: 20060322
  Receipt Date: 20051216
  Transmission Date: 20060701
  Serious: Yes (Death, Life-Threatening, Hospitalization, Other)
  Sender: FDA-Public Use
  Company Number: JP-MERCK-0512USA03364

PATIENT
  Age: 82 Year
  Sex: Female
  Weight: 37 kg

DRUGS (11)
  1. STROMECTOL [Suspect]
     Indication: ACARODERMATITIS
     Route: 048
     Dates: start: 20051129, end: 20051129
  2. BUCILLAMINE [Suspect]
     Indication: RHEUMATOID ARTHRITIS
     Route: 065
     Dates: end: 20051201
  3. PREDNISOLONE [Suspect]
     Route: 048
     Dates: start: 20051201
  4. ACECOL [Concomitant]
     Route: 048
     Dates: end: 20051201
  5. ATELEC [Concomitant]
     Route: 048
     Dates: start: 20051117, end: 20051201
  6. LOXONIN [Concomitant]
     Route: 048
     Dates: end: 20051201
  7. POLARAMINE [Concomitant]
     Indication: PRURITUS
     Route: 048
     Dates: start: 20051110, end: 20051201
  8. KETOTIFEN FUMARATE [Concomitant]
     Route: 048
     Dates: start: 20051006, end: 20051201
  9. SODIUM GUALENATE [Concomitant]
     Indication: PROPHYLAXIS
     Route: 048
     Dates: end: 20051201
  10. MAGNESIUM OXIDE [Concomitant]
     Indication: CONSTIPATION
     Route: 065
     Dates: end: 20051201
  11. ALFACALCIDOL [Concomitant]
     Indication: OSTEOPOROSIS
     Route: 065
     Dates: start: 20050320, end: 20051201

REACTIONS (10)
  - DEPRESSED LEVEL OF CONSCIOUSNESS [None]
  - DISSEMINATED INTRAVASCULAR COAGULATION [None]
  - DYSPHAGIA [None]
  - MULTI-ORGAN FAILURE [None]
  - RASH [None]
  - RESPIRATORY TRACT INFECTION [None]
  - SEPSIS [None]
  - STAPHYLOCOCCAL INFECTION [None]
  - URINARY RETENTION [None]
  - URINARY TRACT INFECTION [None]
